FAERS Safety Report 7002534-2 (Version None)
Quarter: 2010Q3

REPORT INFORMATION
  Report Type: 
  Country: None (occurrence: None)
  Receive Date: 20100920
  Receipt Date: 20090904
  Transmission Date: 20110219
  Serious: Yes (Other)
  Sender: FDA-Public Use
  Company Number: US-ASTRAZENECA-2009SE11933

PATIENT
  Sex: Male

DRUGS (1)
  1. SEROQUEL XR [Suspect]
     Route: 048

REACTIONS (2)
  - LETHARGY [None]
  - SUICIDE ATTEMPT [None]
